FAERS Safety Report 7429682-7 (Version None)
Quarter: 2011Q2

REPORT INFORMATION
  Report Type: 
  Country: None (occurrence: None)
  Receive Date: 20110418
  Receipt Date: 20110418
  Transmission Date: 20111010
  Serious: No
  Sender: FDA-Public Use
  Company Number: None

PATIENT
  Age: 30 Year
  Sex: Female
  Weight: 54.4316 kg

DRUGS (1)
  1. LATISSE [Suspect]
     Dosage: ONE DROP ON EACH UPPER EYELID DAILY
     Dates: start: 20110201, end: 20110401

REACTIONS (3)
  - SKIN EXFOLIATION [None]
  - CHAPPED LIPS [None]
  - ERYTHEMA [None]
